FAERS Safety Report 6026146-2 (Version None)
Quarter: 2008Q4

REPORT INFORMATION
  Report Type: 
  Country: None (occurrence: None)
  Receive Date: 20081230
  Receipt Date: 20081215
  Transmission Date: 20090506
  Serious: Yes (Hospitalization)
  Sender: FDA-Public Use
  Company Number: 2008S1022226

PATIENT
  Age: 78 Year
  Sex: Male

DRUGS (1)
  1. AMIODARONE HYDROCHLORIDE [Suspect]
     Indication: ATRIAL FIBRILLATION
     Dosage: 200 MG;DAILY

REACTIONS (11)
  - ALLERGIC GRANULOMATOUS ANGIITIS [None]
  - CONVULSION [None]
  - GAIT DISTURBANCE [None]
  - LIPOMA [None]
  - METABOLIC ACIDOSIS [None]
  - NAUSEA [None]
  - PAIN [None]
  - PNEUMONITIS [None]
  - PULMONARY TOXICITY [None]
  - SKIN LESION [None]
  - VOMITING [None]
